FAERS Safety Report 21759967 (Version 4)
Quarter: 2023Q1

REPORT INFORMATION
  Report Type: Report from Study
  Country: CL (occurrence: None)
  Receive Date: 20221221
  Receipt Date: 20230215
  Transmission Date: 20230418
  Serious: Yes (Life-Threatening, Hospitalization)
  Sender: FDA-Public Use
  Company Number: CL-Eisai Medical Research-EC-2022-126889

PATIENT
  Age: 61 Year
  Sex: Male
  Weight: 92 kg

DRUGS (11)
  1. LENVATINIB [Suspect]
     Active Substance: LENVATINIB
     Indication: Clear cell renal cell carcinoma
     Dosage: STARTING AT 20 MILLIGRAM (FLUCTUATED DOSAGE)
     Route: 048
     Dates: start: 20210705, end: 20220911
  2. LENVATINIB [Suspect]
     Active Substance: LENVATINIB
     Route: 048
     Dates: start: 20220912, end: 20221007
  3. QUAVONLIMAB [Suspect]
     Active Substance: QUAVONLIMAB
     Indication: Clear cell renal cell carcinoma
     Dosage: MK-1308A 425 MG (QUAVONLIMAB [MK-1308] 25 MG + PEMBROLIZUMAB [MK-3475] 400 MG)
     Route: 042
     Dates: start: 20210705, end: 20220801
  4. PEMBROLIZUMAB [Suspect]
     Active Substance: PEMBROLIZUMAB
     Dosage: MK-1308A 425 MG (QUAVONLIMAB [MK-1308] 25 MG + PEMBROLIZUMAB [MK-3475] 400 MG)
     Route: 042
     Dates: start: 20220912, end: 20220912
  5. LOSARTAN [Concomitant]
     Active Substance: LOSARTAN
     Dates: start: 200001
  6. CARVEDILOL [Concomitant]
     Active Substance: CARVEDILOL
     Dates: start: 202103
  7. XARELTO [Concomitant]
     Active Substance: RIVAROXABAN
     Dates: start: 202103
  8. AMLODIPINE [Concomitant]
     Active Substance: AMLODIPINE BESYLATE
     Dates: start: 20210712
  9. ACETAMINOPHEN [Concomitant]
     Active Substance: ACETAMINOPHEN
     Dates: start: 20210818
  10. LORATADINE [Concomitant]
     Active Substance: LORATADINE
     Dates: start: 20211115
  11. LOPERAMIDE [Concomitant]
     Active Substance: LOPERAMIDE
     Dates: start: 20211227

REACTIONS (1)
  - Nephritis [Recovered/Resolved]

NARRATIVE: CASE EVENT DATE: 20220822
